FAERS Safety Report 6895411-9 (Version None)
Quarter: 2010Q3

REPORT INFORMATION
  Report Type: 
  Country: None (occurrence: None)
  Receive Date: 20100802
  Receipt Date: 20100727
  Transmission Date: 20110219
  Serious: Yes (Other)
  Sender: FDA-Public Use
  Company Number: BR-PFIZER INC-2010087187

PATIENT
  Age: 62 Year
  Sex: Male

DRUGS (8)
  1. VIAGRA [Suspect]
     Indication: ERECTILE DYSFUNCTION
     Dosage: 50 MG, UNK
     Route: 048
     Dates: start: 20080101
  2. CAPTOPRIL [Concomitant]
     Indication: HYPERTENSION
     Dosage: 50 MG, 3X/DAY, 1 TABLET
  3. CAPTOPRIL [Concomitant]
     Indication: ANGINA PECTORIS
  4. PROPRANOLOL [Concomitant]
     Dosage: UNK
  5. ADALAT [Concomitant]
     Dosage: UNK
  6. ASPIRIN [Concomitant]
     Dosage: UNK
  7. FUROSEMID [Concomitant]
     Dosage: UNK
  8. ENALAPRIL MALEATE [Concomitant]
     Dosage: UNK

REACTIONS (4)
  - DRUG INEFFECTIVE [None]
  - ERECTILE DYSFUNCTION [None]
  - INFARCTION [None]
  - WEIGHT INCREASED [None]
